FAERS Safety Report 19211236 (Version 1)
Quarter: 2021Q2

REPORT INFORMATION
  Report Type: Spontaneous
  Country: US (occurrence: US)
  Receive Date: 20210503
  Receipt Date: 20210503
  Transmission Date: 20210717
  Serious: No
  Sender: FDA-Public Use
  Company Number: None

PATIENT
  Age: 45 Year

DRUGS (1)
  1. BUPRENORPHINE NALOXONE 8?2MG [Suspect]
     Active Substance: BUPRENORPHINE\NALOXONE
     Route: 048

REACTIONS (1)
  - Peripheral swelling [None]
